FAERS Safety Report 6905534-3 (Version None)
Quarter: 2010Q3

REPORT INFORMATION
  Report Type: 
  Country: None (occurrence: None)
  Receive Date: 20100804
  Receipt Date: 20100726
  Transmission Date: 20110219
  Serious: Yes (Other)
  Sender: FDA-Public Use
  Company Number: US-PFIZER INC-2010093792

PATIENT
  Sex: Female
  Weight: 95.238 kg

DRUGS (10)
  1. GEODON [Suspect]
     Indication: BIPOLAR DISORDER
     Dosage: UNK MG, UNK
     Route: 048
     Dates: start: 20100701, end: 20100701
  2. GEODON [Suspect]
     Indication: BIPOLAR I DISORDER
  3. LIPITOR [Concomitant]
     Indication: BLOOD CHOLESTEROL INCREASED
     Dosage: 20 MG, 1X/DAY
     Route: 048
  4. RITALIN [Concomitant]
     Indication: ATTENTION DEFICIT/HYPERACTIVITY DISORDER
     Dosage: 20 MG, 1X/DAY
     Route: 048
  5. SEROQUEL [Concomitant]
     Dosage: 150 MG, 1X/DAY
  6. ATENOLOL [Concomitant]
     Indication: HYPERTENSION
     Dosage: 25 MG, 1X/DAY
  7. ATENOLOL [Concomitant]
     Indication: CARDIAC DISORDER
  8. ESTRADIOL [Concomitant]
     Dosage: 2 MG, 1X/DAY
  9. NORTRIPTYLINE [Concomitant]
     Dosage: 50 MG, 1X/DAY
  10. DEXLANSOPRAZOLE [Concomitant]
     Dosage: 60 MG, 1X/DAY
     Route: 048

REACTIONS (6)
  - DIABETES MELLITUS [None]
  - FLUID RETENTION [None]
  - GAIT DISTURBANCE [None]
  - OEDEMA [None]
  - PHARYNGEAL OEDEMA [None]
  - SWOLLEN TONGUE [None]
